FAERS Safety Report 9581841 (Version 2)
Quarter: 2014Q1

REPORT INFORMATION
  Report Type: Report from Study
  Country: JP (occurrence: JP)
  Receive Date: 20131002
  Receipt Date: 20140313
  Transmission Date: 20141002
  Serious: Yes (Other)
  Sender: FDA-Public Use
  Company Number: JP-OTSUKA-JP-2013-14118

PATIENT
  Age: 74 Year
  Sex: Female
  Weight: 43.1 kg

DRUGS (15)
  1. SAMSCA [Suspect]
     Indication: FLUID RETENTION
     Dosage: 7.5 MG MILLIGRAM(S), QAM
     Route: 048
     Dates: start: 20130717
  2. EUGLUCON [Concomitant]
     Dosage: 1.25 MG MILLIGRAM(S), DAILY DOSE
     Route: 048
  3. DIGOSIN [Concomitant]
     Dosage: 0.04 MG MILLIGRAM(S), DAILY DOSE
     Route: 048
     Dates: end: 20130726
  4. DIGOSIN [Concomitant]
     Dosage: 0.05 MG MILLIGRAM(S), DAILY DOSE
     Route: 048
     Dates: start: 20130727
  5. THYRADIN S [Concomitant]
     Dosage: 50 MCG, DAILY DOSE
     Route: 048
  6. LASIX [Concomitant]
     Indication: CARDIAC FAILURE
     Dosage: 60 MG MILLIGRAM(S), DAILY DOSE
     Route: 048
     Dates: end: 20130713
  7. LASIX [Concomitant]
     Dosage: 80 MG MILLIGRAM(S), DAILY DOSE
     Route: 048
     Dates: start: 20130714, end: 20130715
  8. LASIX [Concomitant]
     Dosage: 60 MG MILLIGRAM(S), DAILY DOSE
     Route: 048
     Dates: start: 20130716, end: 20130721
  9. LASIX [Concomitant]
     Dosage: 40 MG MILLIGRAM(S), DAILY DOSE
     Route: 048
     Dates: start: 20130722
  10. LOCHOL [Concomitant]
     Dosage: 30 MG MILLIGRAM(S), DAILY DOSE
     Route: 048
  11. WARFARIN K [Concomitant]
     Dosage: 1.75 MG MILLIGRAM(S), DAILY DOSE
     Route: 048
  12. SPIRONOLACTONE [Concomitant]
     Indication: CARDIAC FAILURE
     Dosage: 25 MG MILLIGRAM(S), DAILY DOSE
     Route: 048
  13. VOGLIBOSE [Concomitant]
     Dosage: 0.9 MG MILLIGRAM(S), DAILY DOSE
     Route: 048
  14. ALLOPURINOL [Concomitant]
     Dosage: 100 MG MILLIGRAM(S), DAILY DOSE
     Route: 048
  15. CEFZON [Concomitant]
     Dosage: 200 MG MILLIGRAM(S), DAILY DOSE
     Route: 048
     Dates: start: 20130716, end: 20130720

REACTIONS (2)
  - Blood urea increased [Unknown]
  - Thirst [Not Recovered/Not Resolved]
